FAERS Safety Report 8611840 (Version 4)
Quarter: 2016Q1

REPORT INFORMATION
  Report Type: Spontaneous
  Country: US (occurrence: US)
  Receive Date: 20120613
  Receipt Date: 20160223
  Transmission Date: 20160526
  Serious: Yes (Hospitalization, Other)
  Sender: FDA-Public Use
  Company Number: US-ASTRAZENECA-2011SE66896

PATIENT
  Age: 26031 Day
  Sex: Female

DRUGS (8)
  1. NEXIUM [Suspect]
     Active Substance: ESOMEPRAZOLE MAGNESIUM
     Route: 048
  2. NEXIUM [Suspect]
     Active Substance: ESOMEPRAZOLE MAGNESIUM
     Route: 048
  3. AMIODARONE [Concomitant]
     Active Substance: AMIODARONE
  4. NEXIUM [Suspect]
     Active Substance: ESOMEPRAZOLE MAGNESIUM
     Route: 048
  5. RHINOCORT AQUA [Suspect]
     Active Substance: BUDESONIDE
     Route: 045
  6. OMEPRAZOLE. [Suspect]
     Active Substance: OMEPRAZOLE
     Route: 048
  7. BRILINTA [Suspect]
     Active Substance: TICAGRELOR
     Indication: ACUTE CORONARY SYNDROME
     Route: 048
     Dates: start: 201512
  8. AMIODARONE [Concomitant]
     Active Substance: AMIODARONE

REACTIONS (22)
  - Oesophageal food impaction [Unknown]
  - Gastric disorder [Unknown]
  - Stress [Unknown]
  - Pain in extremity [Unknown]
  - Feeling jittery [Unknown]
  - Anaemia [Unknown]
  - Hiatus hernia [Unknown]
  - Fatigue [Unknown]
  - Haemoglobin decreased [Recovering/Resolving]
  - Dizziness [Unknown]
  - Intentional product misuse [Unknown]
  - Bronchitis [Unknown]
  - Upper respiratory tract infection [Recovering/Resolving]
  - Malaise [Unknown]
  - Myocardial infarction [Unknown]
  - Anxiety [Unknown]
  - Lethargy [Unknown]
  - Eye disorder [Unknown]
  - Tremor [Unknown]
  - Drug ineffective [Unknown]
  - Gastrooesophageal reflux disease [Unknown]
  - Asthenia [Unknown]

NARRATIVE: CASE EVENT DATE: 20160109
